FAERS Safety Report 6802933-5 (Version None)
Quarter: 2010Q2

REPORT INFORMATION
  Report Type: 
  Country: None (occurrence: None)
  Receive Date: 20100628
  Receipt Date: 20100524
  Transmission Date: 20101027
  Serious: Yes (Hospitalization, Other)
  Sender: FDA-Public Use
  Company Number: PHEH2008US07501

PATIENT
  Sex: Female
  Weight: 67.12 kg

DRUGS (26)
  1. ZELNORM [Suspect]
     Indication: CONSTIPATION
     Dosage: 6 MG, BID
     Dates: start: 20060501
  2. ZELNORM [Suspect]
     Indication: COLITIS ULCERATIVE
  3. COZAAR [Concomitant]
  4. TOPROL-XL [Concomitant]
  5. LIPITOR [Concomitant]
  6. LISINOPRIL [Concomitant]
  7. PLAVIX [Concomitant]
  8. BYETTA [Concomitant]
  9. ASPIRIN [Concomitant]
  10. METFORMIN HCL [Concomitant]
  11. DILAUDID [Concomitant]
  12. PERDIEM [Concomitant]
     Indication: CONSTIPATION
  13. NIASPAN [Concomitant]
  14. NITROGLYCERIN [Concomitant]
  15. ATENOLOL [Concomitant]
     Dosage: 25 MG, UNK
  16. HEPARIN [Concomitant]
  17. PREDNISONE [Concomitant]
  18. GLIPIZIDE [Concomitant]
  19. COLAZAL [Concomitant]
  20. PROTONIX [Concomitant]
  21. NOVOLOG [Concomitant]
  22. JANUVIA [Concomitant]
  23. AMITIZA [Concomitant]
  24. MERCAPTOPURINE [Concomitant]
  25. LANTUS [Concomitant]
  26. FUROSEMIDE [Concomitant]

REACTIONS (14)
  - ANGINA PECTORIS [None]
  - CATHETERISATION CARDIAC [None]
  - CHEST PAIN [None]
  - HISTOPLASMOSIS [None]
  - HYPOCHOLESTEROLAEMIA [None]
  - INJURY [None]
  - LUNG WEDGE RESECTION [None]
  - LYMPH NODE CALCIFICATION [None]
  - MYOCARDIAL INFARCTION [None]
  - NECK PAIN [None]
  - OEDEMA PERIPHERAL [None]
  - PALPITATIONS [None]
  - PNEUMONIA [None]
  - RECTAL HAEMORRHAGE [None]
